FAERS Safety Report 9088802 (Version 1)
Quarter: 2013Q1

REPORT INFORMATION
  Report Type: Report from Study
  Country: US (occurrence: US)
  Receive Date: 20130130
  Receipt Date: 20130130
  Transmission Date: 20140127
  Serious: No
  Sender: FDA-Public Use
  Company Number: US-ABBOTT-12P-163-0979624-00

PATIENT
  Sex: Male
  Weight: 99.88 kg

DRUGS (7)
  1. HUMIRA [Suspect]
     Indication: COLITIS ULCERATIVE
     Dates: start: 201104
  2. DIOVAN [Concomitant]
     Indication: HYPERTENSION
  3. UROXATRAL [Concomitant]
     Indication: PROSTATOMEGALY
  4. AZATHIOPRINE (NON-ABBOTT) [Concomitant]
     Indication: COLITIS ULCERATIVE
  5. KLOR-CAN (NON-ABBOTT) [Concomitant]
     Indication: BLOOD POTASSIUM DECREASED
  6. ALLERGY SHOTS (NON-ABBOTT) [Concomitant]
     Indication: HOUSE DUST ALLERGY
  7. ALLERGY SHOTS (NON-ABBOTT) [Concomitant]
     Indication: SEASONAL ALLERGY

REACTIONS (3)
  - Off label use [Not Recovered/Not Resolved]
  - Colitis ulcerative [Not Recovered/Not Resolved]
  - Hypoaesthesia [Not Recovered/Not Resolved]
